FAERS Safety Report 10179398 (Version 2)
Quarter: 2014Q2

REPORT INFORMATION
  Report Type: Spontaneous
  Country: AU (occurrence: AU)
  Receive Date: 20140519
  Receipt Date: 20140519
  Transmission Date: 20141212
  Serious: Yes (Disabling, Other)
  Sender: FDA-Public Use
  Company Number: AU-PFIZER INC-2014112910

PATIENT
  Age: 69 Year
  Sex: Male
  Weight: 70 kg

DRUGS (1)
  1. VFEND [Suspect]
     Indication: INTERVERTEBRAL DISCITIS
     Dosage: 4 MG/KG, 2X/DAY
     Route: 042
     Dates: end: 201404

REACTIONS (4)
  - Drug level increased [Recovered/Resolved]
  - Delirium [Recovered/Resolved]
  - Encephalopathy [Recovered/Resolved]
  - Renal failure acute [Recovered/Resolved]
